FAERS Safety Report 7356326-5 (Version None)
Quarter: 2011Q1

REPORT INFORMATION
  Report Type: 
  Country: None (occurrence: None)
  Receive Date: 20110316
  Receipt Date: 20110311
  Transmission Date: 20110831
  Serious: Yes (Other)
  Sender: FDA-Public Use
  Company Number: GB-AMGEN-GBRSP2011010074

PATIENT
  Age: 68 Year
  Sex: Female
  Weight: 46 kg

DRUGS (7)
  1. CALCITONIN [Concomitant]
  2. AMITRIPTLINE HYDROCHLORIDE TAB [Concomitant]
  3. VITAMIN A [Concomitant]
  4. MORPHINE [Concomitant]
  5. OMEPRAZOLE [Concomitant]
  6. THYROXINE [Concomitant]
  7. PROLIA [Suspect]
     Indication: OSTEOPOROSIS
     Dosage: 60 MG, Q6MO
     Route: 058
     Dates: start: 20110131

REACTIONS (5)
  - RASH PRURITIC [None]
  - OCULAR HYPERAEMIA [None]
  - CHILLS [None]
  - DERMATITIS ACNEIFORM [None]
  - HEADACHE [None]
